FAERS Safety Report 9120046 (Version 2)
Quarter: 2013Q3

REPORT INFORMATION
  Report Type: Report from Study
  Country: US (occurrence: US)
  Receive Date: 20130226
  Receipt Date: 20130701
  Transmission Date: 20140515
  Serious: Yes (Hospitalization, Other)
  Sender: FDA-Public Use
  Company Number: US-ELI_LILLY_AND_COMPANY-US201302005741

PATIENT
  Age: 81 Year
  Sex: Female

DRUGS (3)
  1. TERIPARATIDE [Suspect]
     Indication: OSTEOPOROSIS
     Dosage: 20 UG, QD
     Dates: start: 20121004
  2. TERIPARATIDE [Suspect]
     Dosage: 20 UG, QD
     Dates: start: 20121004
  3. TERIPARATIDE [Suspect]
     Dosage: UNK, QD
     Dates: start: 20121003

REACTIONS (6)
  - Compression fracture [Unknown]
  - Bronchitis [Unknown]
  - Candida infection [Unknown]
  - Fall [Unknown]
  - Fear of falling [Unknown]
  - Back pain [Unknown]
